FAERS Safety Report 14272736 (Version 2)
Quarter: 2018Q1

REPORT INFORMATION
  Report Type: Spontaneous
  Country: US (occurrence: US)
  Receive Date: 20171212
  Receipt Date: 20180117
  Transmission Date: 20180508
  Serious: Yes (Hospitalization, Other)
  Sender: FDA-Public Use
  Company Number: US-ASTELLAS-2017US051874

PATIENT
  Sex: Female

DRUGS (1)
  1. MYRBETRIQ [Suspect]
     Active Substance: MIRABEGRON
     Indication: HYPERTONIC BLADDER
     Route: 048

REACTIONS (6)
  - Nocturia [Unknown]
  - Constipation [Unknown]
  - Gastrointestinal infection [Unknown]
  - Large intestinal obstruction [Unknown]
  - Hypertension [Unknown]
  - Intentional product misuse [Unknown]
